FAERS Safety Report 7419908-8 (Version None)
Quarter: 2011Q2

REPORT INFORMATION
  Report Type: 
  Country: None (occurrence: None)
  Receive Date: 20110413
  Receipt Date: 20110413
  Transmission Date: 20111010
  Serious: Yes (Hospitalization)
  Sender: FDA-Public Use
  Company Number: None

PATIENT
  Age: 81 Year
  Sex: Male
  Weight: 70.45 kg

DRUGS (11)
  1. DILTIAZEM [Concomitant]
  2. M.V.I. [Interacting]
  3. LASIX [Concomitant]
  4. TESSALON [Concomitant]
  5. ACETAMINOPHEN [Concomitant]
  6. XANAX [Concomitant]
  7. COUMADIN [Suspect]
     Indication: ATRIAL FIBRILLATION
     Dosage: 2MG DAILY PO CHRONIC
     Route: 048
  8. ASPIRIN [Suspect]
     Indication: ATRIAL FIBRILLATION
     Dosage: 325 MG DAILY PO CHRONIC
     Route: 048
  9. METOPROLOL [Concomitant]
  10. ALBUTEROL [Concomitant]
  11. SYNTHROID [Concomitant]

REACTIONS (5)
  - COLONIC POLYP [None]
  - HAEMOGLOBIN DECREASED [None]
  - INTERNATIONAL NORMALISED RATIO INCREASED [None]
  - HAEMORRHOIDAL HAEMORRHAGE [None]
  - PNEUMONIA [None]
